FAERS Safety Report 7226232-5 (Version None)
Quarter: 2011Q1

REPORT INFORMATION
  Report Type: 
  Country: None (occurrence: None)
  Receive Date: 20110114
  Receipt Date: 20110104
  Transmission Date: 20110831
  Serious: Yes (Hospitalization)
  Sender: FDA-Public Use
  Company Number: GXBR2011US00447

PATIENT
  Sex: Male
  Weight: 81.633 kg

DRUGS (5)
  1. DIOVAN [Concomitant]
     Indication: HYPERTENSION
     Dosage: 80 MG, QD
     Route: 048
     Dates: start: 19980101
  2. DULCOLAX [Concomitant]
     Indication: COLONOSCOPY
     Dosage: UNK MG, ONCE2SDO
     Dates: start: 20101121
  3. ASPIRIN [Concomitant]
     Indication: ROUTINE HEALTH MAINTENANCE
     Dosage: 81 MG, QW5
     Dates: start: 20000101, end: 20101123
  4. OMEPRAZOLE DELAYED RELEASE CAPSULES [Suspect]
     Indication: REFLUX LARYNGITIS
     Dosage: 20 MG, QD
     Route: 048
     Dates: start: 20080901, end: 20101011
  5. HYTRIN [Concomitant]
     Indication: PROSTATIC DISORDER
     Dosage: 5 MG, QHS
     Route: 048
     Dates: start: 19980101

REACTIONS (4)
  - DUODENAL ULCER [None]
  - HYPERCHLORHYDRIA [None]
  - HAEMATOCHEZIA [None]
  - DIZZINESS [None]
